FAERS Safety Report 4975088-X (Version None)
Quarter: 2006Q2

REPORT INFORMATION
  Report Type: 
  Country: None (occurrence: None)
  Receive Date: 20060414
  Receipt Date: 20060414
  Transmission Date: 20061013
  Serious: Yes (Other)
  Sender: FDA-Public Use
  Company Number: None

PATIENT
  Age: 54 Year
  Sex: Male
  Weight: 72.5755 kg

DRUGS (4)
  1. PEGAPTANIB SODIUM INJECTION     PFIZER/EYETECH [Suspect]
     Indication: DIABETIC RETINOPATHY
     Dosage: 0.3 MG 1 INTRAOCULAR
     Route: 031
     Dates: start: 20060306, end: 20060306
  2. METFORMIN [Concomitant]
  3. AVANDIA [Concomitant]
  4. TARKA [Concomitant]

REACTIONS (3)
  - CONDITION AGGRAVATED [None]
  - VITRECTOMY [None]
  - VITREOUS HAEMORRHAGE [None]
